FAERS Safety Report 13741378 (Version 1)
Quarter: 2017Q3

REPORT INFORMATION
  Report Type: Spontaneous
  Country: US (occurrence: US)
  Receive Date: 20170711
  Receipt Date: 20170711
  Transmission Date: 20171127
  Serious: Yes (Other)
  Sender: FDA-Public Use
  Company Number: None

PATIENT
  Age: 44 Year
  Sex: Female
  Weight: 60.75 kg

DRUGS (4)
  1. SPIRONOLACTONE 100MG TABLETS [Suspect]
     Active Substance: SPIRONOLACTONE
     Indication: ALOPECIA
     Dosage: ?          OTHER STRENGTH:MG;QUANTITY:1 CAPSULE(S);?
     Route: 048
  2. DAILY MULTI-VITAMIN [Concomitant]
     Active Substance: VITAMINS
  3. ALDACTONE [Concomitant]
     Active Substance: SPIRONOLACTONE
  4. ZYRTEC [Concomitant]
     Active Substance: CETIRIZINE HYDROCHLORIDE

REACTIONS (2)
  - Product substitution issue [None]
  - Alopecia [None]

NARRATIVE: CASE EVENT DATE: 20170601
